FAERS Safety Report 6962803-9 (Version None)
Quarter: 2010Q3

REPORT INFORMATION
  Report Type: 
  Country: None (occurrence: None)
  Receive Date: 20100823
  Receipt Date: 20100604
  Transmission Date: 20110219
  Serious: No
  Sender: FDA-Public Use
  Company Number: 013336

PATIENT
  Sex: Female
  Weight: 61 kg

DRUGS (3)
  1. CIMZIA [Suspect]
     Indication: RHEUMATOID ARTHRITIS
     Dosage: (400 MG 1X/2 WEEKS SUBCUTANEOUS)
     Route: 058
     Dates: start: 20090915
  2. METHOTREXATE [Concomitant]
  3. MELOXICAM [Concomitant]

REACTIONS (3)
  - DRUG INEFFECTIVE [None]
  - JOINT SWELLING [None]
  - PSORIASIS [None]
